FAERS Safety Report 8037352-X (Version None)
Quarter: 2012Q1

REPORT INFORMATION
  Report Type: 
  Country: None (occurrence: None)
  Receive Date: 20120111
  Receipt Date: 20120104
  Transmission Date: 20120608
  Serious: Yes (Hospitalization, Other)
  Sender: FDA-Public Use
  Company Number: GB-JNJFOC-20120101699

PATIENT
  Age: 67 Year
  Sex: Female

DRUGS (4)
  1. STEROIDS NOS [Concomitant]
  2. OTHER BIOLOGICS [Concomitant]
     Indication: RHEUMATOID ARTHRITIS
     Dates: start: 20090714
  3. METHOTREXATE [Concomitant]
     Dates: start: 20090714
  4. INFLIXIMAB, RECOMBINANT [Suspect]
     Indication: RHEUMATOID ARTHRITIS
     Route: 042
     Dates: start: 20060601, end: 20071009

REACTIONS (1)
  - BASAL CELL CARCINOMA [None]
